FAERS Safety Report 4565281-2 (Version None)
Quarter: 2005Q1

REPORT INFORMATION
  Report Type: 
  Country: None (occurrence: None)
  Receive Date: 20050124
  Receipt Date: 20050111
  Transmission Date: 20050727
  Serious: Yes (Hospitalization)
  Sender: FDA-Public Use
  Company Number: 2005-00080

PATIENT
  Age: 71 Year
  Sex: Male

DRUGS (1)
  1. IMMUCYST (BCG-IT (CONNAUGHT) AVENTIS PASTEUR LTD [Suspect]
     Indication: BLADDER CANCER

REACTIONS (13)
  - ANTINUCLEAR ANTIBODY POSITIVE [None]
  - ASCITES [None]
  - CATHETER SITE PAIN [None]
  - DYSURIA [None]
  - GASTRIC ULCER [None]
  - GRANULOMATOUS LIVER DISEASE [None]
  - HAEMATURIA [None]
  - HEPATOSPLENOMEGALY [None]
  - HYPERSENSITIVITY [None]
  - HYPOALBUMINAEMIA [None]
  - PANCYTOPENIA [None]
  - WEIGHT DECREASED [None]
  - WHITE BLOOD CELLS URINE POSITIVE [None]
